FAERS Safety Report 8238804-X (Version None)
Quarter: 2012Q1

REPORT INFORMATION
  Report Type: 
  Country: None (occurrence: None)
  Receive Date: 20120327
  Receipt Date: 20120316
  Transmission Date: 20120608
  Serious: Yes (Hospitalization)
  Sender: FDA-Public Use
  Company Number: JP-JNJFOC-20120302716

PATIENT
  Age: 62 Year
  Sex: Male
  Weight: 60 kg

DRUGS (13)
  1. SOLU-MEDROL [Concomitant]
     Route: 042
     Dates: start: 20111207, end: 20111207
  2. PENTASA [Concomitant]
     Indication: COLITIS ULCERATIVE
     Route: 048
  3. SOLU-MEDROL [Concomitant]
     Indication: COLITIS ULCERATIVE
     Route: 042
     Dates: start: 20120116, end: 20120116
  4. REMICADE [Suspect]
     Route: 042
     Dates: start: 20120104
  5. PREDNISOLONE [Suspect]
     Indication: COLITIS ULCERATIVE
     Route: 048
     Dates: start: 20120209
  6. PREDNISOLONE [Concomitant]
     Route: 042
     Dates: start: 20120126, end: 20120130
  7. REMICADE [Suspect]
     Indication: COLITIS ULCERATIVE
     Route: 042
     Dates: start: 20120201
  8. SOLU-MEDROL [Concomitant]
     Route: 042
     Dates: start: 20120123, end: 20120123
  9. LANSOPRAZOLE [Concomitant]
     Route: 048
  10. REMICADE [Suspect]
     Route: 042
     Dates: start: 20111212
  11. PREDNISOLONE [Suspect]
     Route: 048
     Dates: start: 20120131, end: 20120201
  12. PREDNISOLONE [Suspect]
     Route: 048
     Dates: start: 20120202, end: 20120208
  13. FERROUS CITRATE [Concomitant]
     Route: 048

REACTIONS (4)
  - DIARRHOEA [None]
  - RESPIRATORY FAILURE [None]
  - PNEUMONIA [None]
  - DECREASED APPETITE [None]
